FAERS Safety Report 10952202 (Version 1)
Quarter: 2015Q1

REPORT INFORMATION
  Report Type: Spontaneous
  Country: US (occurrence: None)
  Receive Date: 20150324
  Receipt Date: 20150324
  Transmission Date: 20150721
  Serious: Yes (Other)
  Sender: FDA-Public Use
  Company Number: None

PATIENT
  Age: 32 Year
  Sex: Female
  Weight: 79.38 kg

DRUGS (8)
  1. DULOXETINE HCL DR 60 MG [Suspect]
     Active Substance: DULOXETINE HYDROCHLORIDE
     Indication: DEPRESSION
     Dosage: 1 PILL, ONCE DAILY, TAKEN BY MOUTH
     Route: 048
     Dates: start: 20150218, end: 20150323
  2. METFORMIN [Concomitant]
     Active Substance: METFORMIN HYDROCHLORIDE
  3. TYLENOL [Concomitant]
     Active Substance: ACETAMINOPHEN
  4. CLONAZOPAM [Concomitant]
  5. PROVIGIL [Concomitant]
     Active Substance: MODAFINIL
  6. FLAXSEED [Concomitant]
     Active Substance: FLAX SEED
  7. AGPRO VITAMIN [Concomitant]
  8. CENTRUM ADULT MULTIVITAMIN [Concomitant]

REACTIONS (8)
  - Asthenia [None]
  - Depression [None]
  - Product substitution issue [None]
  - Decreased activity [None]
  - Anxiety [None]
  - Drug effect decreased [None]
  - Panic attack [None]
  - Headache [None]

NARRATIVE: CASE EVENT DATE: 20150322
